FAERS Safety Report 23365234 (Version 1)
Quarter: 2024Q1

REPORT INFORMATION
  Report Type: Spontaneous
  Country: None (occurrence: US)
  Receive Date: 20240104
  Receipt Date: 20240104
  Transmission Date: 20240410
  Serious: No
  Sender: FDA-Public Use
  Company Number: US-STI Pharma LLC-2150118

PATIENT
  Age: 61 Year
  Sex: Male

DRUGS (3)
  1. ETHAMBUTOL HYDROCHLORIDE [Suspect]
     Active Substance: ETHAMBUTOL HYDROCHLORIDE
     Dates: start: 202301
  2. AZITHROMYCIN [Concomitant]
     Active Substance: AZITHROMYCIN
     Dates: start: 202301
  3. RIFAMPIN [Concomitant]
     Active Substance: RIFAMPIN
     Dates: start: 202301

REACTIONS (5)
  - Nausea [Recovered/Resolved]
  - Decreased appetite [Unknown]
  - Weight decreased [Unknown]
  - Dyspnoea exertional [Unknown]
  - Cough [Unknown]
